FAERS Safety Report 17116386 (Version 1)
Quarter: 2019Q4

REPORT INFORMATION
  Report Type: Spontaneous
  Country: GB (occurrence: GB)
  Receive Date: 20191205
  Receipt Date: 20191205
  Transmission Date: 20200122
  Serious: Yes (Hospitalization)
  Sender: FDA-Public Use
  Company Number: GB-TEVA-2019-GB-1146675

PATIENT
  Age: 32 Year
  Sex: Female

DRUGS (10)
  1. DALTEPARIN SODIUM [Concomitant]
     Active Substance: DALTEPARIN SODIUM
     Dosage: EACH MORNING. 1 DOSAGE FORMS
     Route: 058
  2. HALOPERIDOL. [Suspect]
     Active Substance: HALOPERIDOL
     Indication: BIPOLAR DISORDER
     Dosage: 10 MG
     Route: 048
     Dates: start: 20190617, end: 20190620
  3. PREGABALIN. [Concomitant]
     Active Substance: PREGABALIN
     Dosage: 600 MG
     Route: 048
     Dates: end: 20190620
  4. LORAZEPAM. [Concomitant]
     Active Substance: LORAZEPAM
     Dosage: 2 MG
     Route: 048
     Dates: start: 20190617
  5. MONTELUKAST [Concomitant]
     Active Substance: MONTELUKAST SODIUM
     Dosage: AT NIGHT. 10 MG
     Route: 048
  6. OXYBUTYNIN. [Concomitant]
     Active Substance: OXYBUTYNIN CHLORIDE
     Dosage: 10 MG
     Route: 048
  7. PROPRANOLOL [Concomitant]
     Active Substance: PROPRANOLOL HYDROCHLORIDE
     Dosage: 160 MG
     Route: 048
     Dates: end: 20190620
  8. METFORMIN [Concomitant]
     Active Substance: METFORMIN HYDROCHLORIDE
     Dosage: 1500 MG
     Route: 048
     Dates: end: 20190620
  9. FEXOFENADINE [Concomitant]
     Active Substance: FEXOFENADINE HYDROCHLORIDE
     Dosage: EACH MORNING. 180 MG
     Route: 048
  10. LANSOPRAZOLE. [Concomitant]
     Active Substance: LANSOPRAZOLE
     Dosage: EACH MORNING. 30 MG
     Route: 048

REACTIONS (5)
  - Unresponsive to stimuli [Unknown]
  - Neuroleptic malignant syndrome [Recovered/Resolved]
  - Hypoxia [Unknown]
  - Pyrexia [Unknown]
  - Catatonia [Unknown]

NARRATIVE: CASE EVENT DATE: 20190624
